FAERS Safety Report 18417862 (Version 1)
Quarter: 2020Q4

REPORT INFORMATION
  Report Type: Other
  Country: CA (occurrence: CA)
  Receive Date: 20201023
  Receipt Date: 20201023
  Transmission Date: 20210114
  Serious: Yes (Other)
  Sender: FDA-Public Use
  Company Number: CA-APOTEX-2020AP019991

PATIENT
  Sex: Male
  Weight: 133 kg

DRUGS (7)
  1. DASATINIB. [Suspect]
     Active Substance: DASATINIB
     Dosage: 100 MILLIGRAM, QD
     Route: 065
  2. IMATINIB. [Suspect]
     Active Substance: IMATINIB MESYLATE
     Indication: CHRONIC MYELOID LEUKAEMIA
     Dosage: UNK
     Route: 065
  3. NILOTINIB [Suspect]
     Active Substance: NILOTINIB
     Indication: CHRONIC MYELOID LEUKAEMIA
     Dosage: UNK
     Route: 065
  4. DASATINIB. [Suspect]
     Active Substance: DASATINIB
     Indication: CHRONIC MYELOID LEUKAEMIA
     Dosage: 100 MILLIGRAM, QD
     Route: 065
  5. ANAGRELIDE HYDROCHLORIDE. [Suspect]
     Active Substance: ANAGRELIDE HYDROCHLORIDE
     Indication: CHRONIC MYELOID LEUKAEMIA
     Dosage: UNK
     Route: 065
  6. HYDROXYUREA. [Suspect]
     Active Substance: HYDROXYUREA
     Indication: CHRONIC MYELOID LEUKAEMIA
     Dosage: 1000 MILLIGRAM, QD
     Route: 065
  7. HYDROXYUREA. [Suspect]
     Active Substance: HYDROXYUREA
     Dosage: 1000 MILLIGRAM, QD
     Route: 065

REACTIONS (3)
  - Pericardial effusion [Unknown]
  - Asthma [Unknown]
  - Drug intolerance [Unknown]
